FAERS Safety Report 16875576 (Version 2)
Quarter: 2020Q1

REPORT INFORMATION
  Report Type: Spontaneous
  Country: US (occurrence: US)
  Receive Date: 20191002
  Receipt Date: 20200124
  Transmission Date: 20200409
  Serious: Yes (Other)
  Sender: FDA-Public Use
  Company Number: US-ASTRAZENECA-2019SF36478

PATIENT
  Age: 59 Year
  Sex: Female
  Weight: 76.2 kg

DRUGS (53)
  1. NEXIUM 24HR [Suspect]
     Active Substance: ESOMEPRAZOLE MAGNESIUM
     Indication: GASTROOESOPHAGEAL REFLUX DISEASE
     Route: 048
     Dates: start: 2015, end: 2019
  2. RANIDINE [Concomitant]
     Dates: start: 2009
  3. LINZESS [Concomitant]
     Active Substance: LINACLOTIDE
     Dates: start: 201711, end: 201801
  4. LINZESS [Concomitant]
     Active Substance: LINACLOTIDE
     Dates: start: 20171102
  5. NABUMETONE. [Concomitant]
     Active Substance: NABUMETONE
  6. FLUCONAZOLE. [Concomitant]
     Active Substance: FLUCONAZOLE
  7. POTASSIUM [Concomitant]
     Active Substance: POTASSIUM
  8. TRAMADOL. [Concomitant]
     Active Substance: TRAMADOL
     Indication: PAIN
     Dates: start: 2014
  9. VITAMIN D3 [Concomitant]
     Active Substance: CHOLECALCIFEROL
     Dates: start: 201903
  10. MEMANTINE. [Concomitant]
     Active Substance: MEMANTINE
     Route: 048
     Dates: start: 20181211
  11. IBUPROFEN. [Concomitant]
     Active Substance: IBUPROFEN
  12. DICLOFENAC [Concomitant]
     Active Substance: DICLOFENAC
  13. NITROFURANTOIN. [Concomitant]
     Active Substance: NITROFURANTOIN
     Dates: start: 20190131
  14. CLOBETASOL [Concomitant]
     Active Substance: CLOBETASOL
     Dates: start: 20190131
  15. NEXIUM [Suspect]
     Active Substance: ESOMEPRAZOLE MAGNESIUM
     Indication: GASTROOESOPHAGEAL REFLUX DISEASE
     Route: 048
     Dates: start: 2006, end: 2016
  16. CHLORTHALIDONE. [Concomitant]
     Active Substance: CHLORTHALIDONE
     Indication: HYPERTENSION
     Dates: start: 201812
  17. COQ10 [Concomitant]
     Active Substance: UBIDECARENONE
     Indication: CARDIAC DISORDER
     Dates: start: 2013, end: 2018
  18. LINZESS [Concomitant]
     Active Substance: LINACLOTIDE
     Dates: start: 20171130
  19. MEMANTINE. [Concomitant]
     Active Substance: MEMANTINE
     Indication: DEMENTIA
     Dates: start: 201812
  20. AMOXICILLIN. [Concomitant]
     Active Substance: AMOXICILLIN
     Indication: INFECTION
     Dates: start: 201308
  21. TRAZODONE [Concomitant]
     Active Substance: TRAZODONE HYDROCHLORIDE
     Indication: SLEEP DISORDER
     Dates: start: 2014
  22. MEMANTINE. [Concomitant]
     Active Substance: MEMANTINE
     Route: 048
     Dates: start: 20181114
  23. TRIAMTERENE. [Concomitant]
     Active Substance: TRIAMTERENE
  24. BENZONATATE. [Concomitant]
     Active Substance: BENZONATATE
     Dates: start: 20180130
  25. TIZANIDINE. [Concomitant]
     Active Substance: TIZANIDINE
  26. NEXIUM 24HR [Suspect]
     Active Substance: ESOMEPRAZOLE MAGNESIUM
     Indication: GASTROOESOPHAGEAL REFLUX DISEASE
     Route: 048
     Dates: start: 2015
  27. NEXIUM [Suspect]
     Active Substance: ESOMEPRAZOLE MAGNESIUM
     Indication: GASTROOESOPHAGEAL REFLUX DISEASE
     Route: 048
     Dates: start: 2006, end: 2016
  28. RESTASIS [Concomitant]
     Active Substance: CYCLOSPORINE
     Dates: start: 2019
  29. VITAMIN B [Concomitant]
     Active Substance: VITAMIN B
     Indication: ROUTINE HEALTH MAINTENANCE
     Dates: start: 2014
  30. CHLORTHALIDONE. [Concomitant]
     Active Substance: CHLORTHALIDONE
     Indication: HYPERTENSION
     Route: 048
     Dates: start: 20181219
  31. MEMANTINE. [Concomitant]
     Active Substance: MEMANTINE
     Route: 048
     Dates: start: 20190108
  32. ONDANSETRON [Concomitant]
     Active Substance: ONDANSETRON
  33. LACTULOSE. [Concomitant]
     Active Substance: LACTULOSE
  34. NEXIUM 24HR [Suspect]
     Active Substance: ESOMEPRAZOLE MAGNESIUM
     Indication: GASTROOESOPHAGEAL REFLUX DISEASE
     Route: 048
     Dates: start: 2015
  35. AMLODIPINE [Concomitant]
     Active Substance: AMLODIPINE BESYLATE
     Indication: HYPERTENSION
     Dates: start: 2019
  36. METOPROLOL. [Concomitant]
     Active Substance: METOPROLOL
     Indication: HYPERTENSION
     Dates: start: 20171106
  37. ASPIRIN. [Concomitant]
     Active Substance: ASPIRIN
     Indication: ROUTINE HEALTH MAINTENANCE
     Dates: start: 2016
  38. BIOTIN [Concomitant]
     Active Substance: BIOTIN
     Indication: HAIR METAL TEST
     Dates: start: 2014
  39. PREDNISONE. [Concomitant]
     Active Substance: PREDNISONE
     Route: 048
     Dates: start: 20180403
  40. NEXIUM 24HR [Suspect]
     Active Substance: ESOMEPRAZOLE MAGNESIUM
     Indication: GASTROOESOPHAGEAL REFLUX DISEASE
     Route: 048
     Dates: start: 2015, end: 2019
  41. METOPROLOL. [Concomitant]
     Active Substance: METOPROLOL
     Indication: HYPERTENSION
     Dates: start: 2014
  42. METOPROLOL. [Concomitant]
     Active Substance: METOPROLOL
     Indication: HYPERTENSION
     Dates: start: 20171212
  43. VITAMIN D [Concomitant]
     Active Substance: VITAMIN D NOS
     Indication: BONE DISORDER
     Dates: start: 2014
  44. CHLORTHALIDONE. [Concomitant]
     Active Substance: CHLORTHALIDONE
     Indication: HYPERTENSION
     Route: 048
     Dates: start: 20191113
  45. BACLOFEN. [Concomitant]
     Active Substance: BACLOFEN
     Indication: MUSCLE SPASMS
     Dates: start: 201511, end: 201609
  46. HYDROCODONE [Concomitant]
     Active Substance: HYDROCODONE
     Indication: PAIN
     Dates: start: 201308, end: 201503
  47. SODIUM BICARBONATE. [Concomitant]
     Active Substance: SODIUM BICARBONATE
  48. BACLOFEN. [Concomitant]
     Active Substance: BACLOFEN
     Indication: MUSCLE SPASMS
     Dates: start: 201511, end: 201609
  49. GABAPENTIN. [Concomitant]
     Active Substance: GABAPENTIN
  50. SPIRONOLACTONE. [Concomitant]
     Active Substance: SPIRONOLACTONE
  51. PREMARIN [Concomitant]
     Active Substance: ESTROGENS, CONJUGATED
  52. LORAZEPAM. [Concomitant]
     Active Substance: LORAZEPAM
  53. DIVALPROEX [Concomitant]
     Active Substance: DIVALPROEX SODIUM
     Dates: start: 20171002

REACTIONS (1)
  - Chronic kidney disease [Not Recovered/Not Resolved]

NARRATIVE: CASE EVENT DATE: 2013
